FAERS Safety Report 23264434 (Version 1)
Quarter: 2023Q4

REPORT INFORMATION
  Report Type: Report from Study
  Country: NL (occurrence: NL)
  Receive Date: 20231205
  Receipt Date: 20231205
  Transmission Date: 20240109
  Serious: Yes (Death)
  Sender: FDA-Public Use
  Company Number: NL-ABBVIE-5524697

PATIENT
  Age: 74 Year
  Sex: Male

DRUGS (7)
  1. CARBIDOPA\LEVODOPA [Suspect]
     Active Substance: CARBIDOPA\LEVODOPA
     Indication: Parkinson^s disease
     Dosage: REMAINS AT 16 HOURS
     Route: 050
     Dates: start: 20191119
  2. CARBIDOPA\LEVODOPA [Suspect]
     Active Substance: CARBIDOPA\LEVODOPA
     Dosage: MD 13.4 ML; CD 4.7 ML/H; ED 5.5 ML, REMAINS AT 16 HOURS
     Route: 050
     Dates: start: 20231031
  3. CARBIDOPA\LEVODOPA [Suspect]
     Active Substance: CARBIDOPA\LEVODOPA
     Dosage: MD 13.5 ML; CD 4.7 ML/H; ED 5.5 ML, REMAINS AT 16 HOURS
     Route: 050
     Dates: start: 20230524, end: 20231031
  4. SINEMET [Concomitant]
     Active Substance: CARBIDOPA\LEVODOPA
     Indication: Product used for unknown indication
     Dosage: CONTROLLED RELEASE
  5. BENSERAZIDE HYDROCHLORIDE\LEVODOPA [Concomitant]
     Active Substance: BENSERAZIDE HYDROCHLORIDE\LEVODOPA
     Indication: Product used for unknown indication
  6. CARBIDOPA\LEVODOPA [Concomitant]
     Active Substance: CARBIDOPA\LEVODOPA
     Indication: Parkinson^s disease
  7. ZOPICLONE [Concomitant]
     Active Substance: ZOPICLONE
     Indication: Sleep disorder therapy

REACTIONS (1)
  - Pneumonitis [Fatal]
